FAERS Safety Report 20981330 (Version 1)
Quarter: 2022Q2

REPORT INFORMATION
  Report Type: Report from Study
  Country: US (occurrence: US)
  Receive Date: 20220620
  Receipt Date: 20220620
  Transmission Date: 20220721
  Serious: Yes (Death, Other)
  Sender: FDA-Public Use
  Company Number: US-BRISTOL-MYERS SQUIBB COMPANY-2022-053730

PATIENT
  Age: 68 Year
  Sex: Female

DRUGS (1)
  1. ENASIDENIB [Suspect]
     Active Substance: ENASIDENIB
     Indication: Product used for unknown indication
     Route: 065

REACTIONS (1)
  - Death [Fatal]
